FAERS Safety Report 6154356-2 (Version None)
Quarter: 2009Q2

REPORT INFORMATION
  Report Type: 
  Country: None (occurrence: None)
  Receive Date: 20090414
  Receipt Date: 20090407
  Transmission Date: 20091009
  Serious: Yes (Other)
  Sender: FDA-Public Use
  Company Number: PHEH2009US03489

PATIENT
  Sex: Female

DRUGS (1)
  1. ZOMETA [Suspect]

REACTIONS (6)
  - BONE EROSION [None]
  - CONDITION AGGRAVATED [None]
  - FACIAL PAIN [None]
  - JAW DISORDER [None]
  - MYALGIA [None]
  - PAIN IN JAW [None]
